FAERS Safety Report 25941004 (Version 2)
Quarter: 2025Q4

REPORT INFORMATION
  Report Type: Spontaneous
  Country: EU (occurrence: EU)
  Receive Date: 20251020
  Receipt Date: 20251103
  Transmission Date: 20260117
  Serious: Yes (Other)
  Sender: ASTELLAS
  Company Number: EU-ASTELLAS-2025-AER-057402

PATIENT
  Age: 44 Year
  Sex: Male

DRUGS (4)
  1. ENZALUTAMIDE [Suspect]
     Active Substance: ENZALUTAMIDE
     Indication: Prostate cancer
     Route: 065
     Dates: start: 202505
  2. ENZALUTAMIDE [Suspect]
     Active Substance: ENZALUTAMIDE
     Route: 065
     Dates: end: 202509
  3. TALAZOPARIB [Suspect]
     Active Substance: TALAZOPARIB
     Indication: Prostate cancer
     Route: 065
     Dates: end: 202509
  4. TALAZOPARIB [Suspect]
     Active Substance: TALAZOPARIB
     Route: 065
     Dates: start: 202505

REACTIONS (9)
  - Thrombocytopenia [Recovering/Resolving]
  - Malignant neoplasm progression [Recovering/Resolving]
  - Anaemia [Recovering/Resolving]
  - Food intolerance [Recovering/Resolving]
  - Dysgeusia [Recovering/Resolving]
  - Restless legs syndrome [Recovering/Resolving]
  - Affect lability [Recovering/Resolving]
  - Dry mouth [Recovering/Resolving]
  - Weight decreased [Recovering/Resolving]
